FAERS Safety Report 9292292 (Version 1)
Quarter: 2013Q1

REPORT INFORMATION
  Report Type: Spontaneous
  Country: US (occurrence: None)
  Receive Date: 20121214
  Receipt Date: 20121214
  Transmission Date: 20140127
  Serious: No
  Sender: FDA-Public Use
  Company Number: E7389-03024-SPO-US

PATIENT
  Age: 70 Year
  Sex: Male

DRUGS (1)
  1. HALAVEN [Suspect]
     Indication: BREAST CANCER
     Dosage: THERAPY DATES: INTERMITTENT SINCE 29
     Route: 042

REACTIONS (1)
  - Blood glucose increased [None]
